FAERS Safety Report 5715455-X (Version None)
Quarter: 2008Q2

REPORT INFORMATION
  Report Type: 
  Country: None (occurrence: None)
  Receive Date: 20080422
  Receipt Date: 20080410
  Transmission Date: 20081010
  Serious: Yes (Hospitalization)
  Sender: FDA-Public Use
  Company Number: 231019J07USA

PATIENT
  Age: 57 Year
  Sex: Female
  Weight: 55.3388 kg

DRUGS (10)
  1. REBIF [Suspect]
     Indication: MULTIPLE SCLEROSIS
     Dosage: 44 MCG, 44 IN 1 WEEKS, SUBCUTANEOUS
     Route: 058
     Dates: start: 20041208
  2. NEXIUM [Concomitant]
  3. PAXIL [Concomitant]
  4. XANAX [Concomitant]
  5. AMBIEN [Concomitant]
  6. PREDNISONE TAB [Concomitant]
  7. ALBUTEROL [Concomitant]
  8. IRON PILL (IRON) [Concomitant]
  9. VITAMIN B12 [Concomitant]
  10. CENTRUM SILVER (CENTRUM SILVER) [Concomitant]

REACTIONS (11)
  - ANOREXIA [None]
  - DIZZINESS [None]
  - DYSGEUSIA [None]
  - DYSPHAGIA [None]
  - DYSPNOEA [None]
  - GAIT DISTURBANCE [None]
  - LUNG CANCER METASTATIC [None]
  - METASTASES TO CENTRAL NERVOUS SYSTEM [None]
  - METASTASES TO LYMPH NODES [None]
  - NERVOUS SYSTEM DISORDER [None]
  - WEIGHT DECREASED [None]
